FAERS Safety Report 5940843-6 (Version None)
Quarter: 2008Q4

REPORT INFORMATION
  Report Type: 
  Country: None (occurrence: None)
  Receive Date: 20081104
  Receipt Date: 20081103
  Transmission Date: 20090506
  Serious: Yes (Death)
  Sender: FDA-Public Use
  Company Number: US-BAYER-200813035BCC

PATIENT
  Age: 58 Year
  Sex: Male
  Weight: 113 kg

DRUGS (3)
  1. BRONKAID DUAL ACTION CAPLETS [Suspect]
     Indication: DRUG USE FOR UNKNOWN INDICATION
     Route: 048
     Dates: end: 20080101
  2. BRONKAID DUAL ACTION CAPLETS [Suspect]
     Route: 048
     Dates: start: 20080101, end: 20080725
  3. METFORMIN HCL [Concomitant]

REACTIONS (4)
  - ASPIRATION [None]
  - HAEMORRHAGE [None]
  - RASH [None]
  - VOMITING [None]
